FAERS Safety Report 10186397 (Version 1)
Quarter: 2014Q2

REPORT INFORMATION
  Report Type: Spontaneous
  Country: US (occurrence: US)
  Receive Date: 20140521
  Receipt Date: 20140521
  Transmission Date: 20141212
  Serious: No
  Sender: FDA-Public Use
  Company Number: US-ASTRAZENECA-2013SE79078

PATIENT
  Age: 7 Year
  Sex: Female
  Weight: 21.3 kg

DRUGS (7)
  1. PULMICORT RESPULES [Suspect]
     Indication: ASTHMA
     Dosage: 200
     Route: 055
  2. PULMICORT RESPULES [Suspect]
     Indication: MULTIPLE ALLERGIES
     Dosage: 200
     Route: 055
  3. PULMICORT RESPULES [Suspect]
     Indication: NASOPHARYNGITIS
     Dosage: 200
     Route: 055
  4. PULMICORT RESPULES [Suspect]
     Indication: ASTHMA
     Route: 055
     Dates: start: 2008
  5. PULMICORT RESPULES [Suspect]
     Indication: MULTIPLE ALLERGIES
     Route: 055
     Dates: start: 2008
  6. PULMICORT RESPULES [Suspect]
     Indication: NASOPHARYNGITIS
     Route: 055
     Dates: start: 2008
  7. ALBUTEROL [Concomitant]
     Indication: ASTHMA
     Dosage: UNK PRN
     Route: 055

REACTIONS (3)
  - Nasopharyngitis [Unknown]
  - Milk allergy [Unknown]
  - Drug hypersensitivity [Unknown]
